FAERS Safety Report 7892872-3 (Version None)
Quarter: 2011Q4

REPORT INFORMATION
  Report Type: 
  Country: None (occurrence: None)
  Receive Date: 20111104
  Receipt Date: 20111025
  Transmission Date: 20120403
  Serious: Yes (Disabling)
  Sender: FDA-Public Use
  Company Number: IT-JNJFOC-20110709816

PATIENT
  Sex: Female
  Weight: 40.8 kg

DRUGS (2)
  1. REMICADE [Suspect]
     Route: 042
     Dates: start: 20110305
  2. REMICADE [Suspect]
     Indication: CROHN'S DISEASE
     Route: 042
     Dates: start: 20110623

REACTIONS (1)
  - SACROILIITIS [None]
